FAERS Safety Report 7508119-3 (Version None)
Quarter: 2011Q2

REPORT INFORMATION
  Report Type: 
  Country: None (occurrence: None)
  Receive Date: 20110527
  Receipt Date: 20110513
  Transmission Date: 20111010
  Serious: Yes (Other)
  Sender: FDA-Public Use
  Company Number: US-BAYER-201017766NA

PATIENT
  Age: 31 Year
  Sex: Female
  Weight: 95.238 kg

DRUGS (26)
  1. ADVIL LIQUI-GELS [Concomitant]
  2. ASCORBIC ACID [Concomitant]
  3. METROGEL [Concomitant]
     Route: 061
  4. EFFEXOR XR [Concomitant]
     Route: 048
  5. PHENERGAN HCL [Concomitant]
     Indication: NAUSEA
     Dosage: UNK
     Dates: start: 20070405
  6. PREVACID [Concomitant]
     Indication: ANXIETY
  7. YASMIN [Suspect]
     Indication: PREMENSTRUAL SYNDROME
     Dosage: AS USED DOSE: UNK
     Dates: start: 20040101, end: 20080101
  8. SPIRONOLACTONE [Concomitant]
     Route: 048
  9. THYROID TAB [Concomitant]
     Route: 048
  10. ZELNORM [Concomitant]
  11. DROSPIRENONE AND ETHINYL ESTRADIOL [Suspect]
     Dosage: UNK
     Dates: start: 20080101, end: 20090701
  12. SYNTHROID [Concomitant]
     Indication: GASTROOESOPHAGEAL REFLUX DISEASE
  13. METFORMIN HCL [Concomitant]
     Indication: DIABETES MELLITUS
     Route: 048
  14. PEPCID [Concomitant]
     Indication: ABDOMINAL PAIN UPPER
     Dosage: UNK
     Dates: start: 20070301
  15. PAXIL [Concomitant]
     Indication: THYROID DISORDER
  16. PREVACID [Concomitant]
     Indication: DEPRESSION
  17. EFFEXOR [Concomitant]
     Indication: DEPRESSION
  18. EFFEXOR [Concomitant]
     Indication: ANXIETY
  19. VITAMIN B-12 [Concomitant]
     Indication: INSOMNIA
     Route: 058
  20. ATIVAN [Concomitant]
     Route: 048
  21. ASTELIN [Concomitant]
     Route: 045
  22. DIGESTIVE ENZYMES [Concomitant]
     Indication: ABDOMINAL PAIN UPPER
     Dosage: UNK
     Dates: start: 20070301
  23. DROSPIRENONE AND ETHINYL ESTRADIOL [Suspect]
     Dosage: UNK
     Dates: start: 20080604, end: 20080915
  24. CETIRIZINE HCL [Concomitant]
     Route: 048
  25. BACTROBAN [Concomitant]
     Dosage: 2%
     Route: 061
  26. SIMETHICONE [Concomitant]
     Indication: ABDOMINAL PAIN UPPER
     Dosage: UNK
     Dates: start: 20070301, end: 20070301

REACTIONS (5)
  - ABDOMINAL PAIN UPPER [None]
  - WEIGHT DECREASED [None]
  - CHOLESTEROSIS [None]
  - BILIARY DYSKINESIA [None]
  - CHOLECYSTITIS CHRONIC [None]
